FAERS Safety Report 15621240 (Version 1)
Quarter: 2018Q4

REPORT INFORMATION
  Report Type: Spontaneous
  Country: US (occurrence: US)
  Receive Date: 20181109
  Receipt Date: 20181109
  Transmission Date: 20190205
  Serious: Yes (Hospitalization)
  Sender: FDA-Public Use
  Company Number: None

PATIENT
  Age: 6 Month
  Sex: Female
  Weight: 66.7 kg

DRUGS (8)
  1. PERTUZUMAB. [Concomitant]
     Active Substance: PERTUZUMAB
  2. PERTUZUMAB. [Suspect]
     Active Substance: PERTUZUMAB
     Indication: BREAST CANCER
     Route: 042
     Dates: start: 20180727, end: 20181019
  3. PACLITAXEL 80MG/M2 [Suspect]
     Active Substance: PACLITAXEL
     Indication: BREAST CANCER
     Route: 042
     Dates: start: 20180727, end: 20181026
  4. PACLITAXEL. [Concomitant]
     Active Substance: PACLITAXEL
  5. CARBOPLATIN AUC 2 [Suspect]
     Active Substance: CARBOPLATIN
     Indication: BREAST CANCER
     Route: 042
     Dates: start: 20180727, end: 20181026
  6. CARBOPLATIN. [Concomitant]
     Active Substance: CARBOPLATIN
  7. TRASTUZUMAB 8MG/KG C1, 6MG/KG C2-4 [Suspect]
     Active Substance: TRASTUZUMAB
     Indication: BREAST CANCER
     Dosage: ?          OTHER STRENGTH:8MG/KG C1, 6MG/KG;OTHER DOSE:544MG, 408MG;?
     Route: 042
     Dates: start: 20180727, end: 20181019
  8. TRASTUZUMAB. [Concomitant]
     Active Substance: TRASTUZUMAB

REACTIONS (13)
  - Dyspnoea [None]
  - Anaemia [None]
  - Hypokalaemia [None]
  - Hypoalbuminaemia [None]
  - Hypotension [None]
  - Diarrhoea [None]
  - Constipation [None]
  - Kidney infection [None]
  - Non-cardiac chest pain [None]
  - Hypocalcaemia [None]
  - Sinus tachycardia [None]
  - Blood pressure decreased [None]
  - Pyrexia [None]

NARRATIVE: CASE EVENT DATE: 20181031
